FAERS Safety Report 21937904 (Version 1)
Quarter: 2023Q1

REPORT INFORMATION
  Report Type: Spontaneous
  Country: US (occurrence: None)
  Receive Date: 20230201
  Receipt Date: 20230201
  Transmission Date: 20230417
  Serious: Yes (Hospitalization)
  Sender: FDA-Public Use
  Company Number: None

PATIENT
  Age: 65 Year
  Sex: Female
  Weight: 66.6 kg

DRUGS (17)
  1. CLENPIQ [Suspect]
     Active Substance: ANHYDROUS CITRIC ACID\MAGNESIUM OXIDE\SODIUM PICOSULFATE
     Indication: Colonoscopy
     Dosage: OTHER QUANTITY : 5 OUNCE(S);?FREQUENCY : EVERY 8 HOURS;?
     Route: 048
     Dates: start: 20230125, end: 20230125
  2. SYNTHROID [Concomitant]
     Active Substance: LEVOTHYROXINE SODIUM
  3. ATORVASTATIN [Concomitant]
     Active Substance: ATORVASTATIN
  4. MINIVELLE [Concomitant]
     Active Substance: ESTRADIOL
  5. Mybetric [Concomitant]
  6. OMEPRAZOLE [Concomitant]
     Active Substance: OMEPRAZOLE
  7. Progestrone [Concomitant]
  8. XYZAL [Concomitant]
     Active Substance: LEVOCETIRIZINE DIHYDROCHLORIDE
  9. ZIOPTAN [Concomitant]
     Active Substance: TAFLUPROST
  10. CLOBETASOL [Concomitant]
     Active Substance: CLOBETASOL
  11. AZELASTINE [Concomitant]
     Active Substance: AZELASTINE
  12. PEPPERMINT OIL [Concomitant]
     Active Substance: PEPPERMINT OIL
  13. IMODIUM [Concomitant]
     Active Substance: LOPERAMIDE HYDROCHLORIDE
  14. PENNSAID [Concomitant]
     Active Substance: DICLOFENAC SODIUM
  15. RIZATRIPTAN [Concomitant]
     Active Substance: RIZATRIPTAN
  16. PROCTOSOL [Concomitant]
  17. TYLENOL [Concomitant]
     Active Substance: ACETAMINOPHEN

REACTIONS (5)
  - Diarrhoea [None]
  - Dehydration [None]
  - Headache [None]
  - Asthenia [None]
  - Haematochezia [None]

NARRATIVE: CASE EVENT DATE: 20230125
